FAERS Safety Report 6702994-8 (Version None)
Quarter: 2010Q2

REPORT INFORMATION
  Report Type: 
  Country: None (occurrence: None)
  Receive Date: 20100429
  Receipt Date: 20100429
  Transmission Date: 20101027
  Serious: Yes (Other)
  Sender: FDA-Public Use
  Company Number: None

PATIENT
  Age: 65 Year
  Sex: Male

DRUGS (1)
  1. OMEPRAZOLE [Suspect]
     Dosage: 1 QD

REACTIONS (4)
  - ARTHRALGIA [None]
  - BLOOD URIC ACID INCREASED [None]
  - MYALGIA [None]
  - STEVENS-JOHNSON SYNDROME [None]
